FAERS Safety Report 9052669 (Version 1)
Quarter: 2013Q1

REPORT INFORMATION
  Report Type: Spontaneous
  Country: US (occurrence: US)
  Receive Date: 20130207
  Receipt Date: 20130207
  Transmission Date: 20140127
  Serious: Yes (Hospitalization, Other)
  Sender: FDA-Public Use
  Company Number: US-US-EMD SERONO, INC.-7025652

PATIENT
  Sex: Female

DRUGS (2)
  1. REBIF [Suspect]
     Indication: PRODUCT USED FOR UNKNOWN INDICATION
     Route: 058
     Dates: start: 20050526, end: 20101103
  2. REBIF [Suspect]
     Dates: end: 201211

REACTIONS (5)
  - Caesarean section [Recovered/Resolved]
  - Postpartum depression [Recovering/Resolving]
  - Fatigue [Unknown]
  - Normal newborn [Recovered/Resolved]
  - Maternal exposure timing unspecified [Recovered/Resolved]
